FAERS Safety Report 23064276 (Version 4)
Quarter: 2023Q4

REPORT INFORMATION
  Report Type: Spontaneous
  Country: FR (occurrence: FR)
  Receive Date: 20231013
  Receipt Date: 20231121
  Transmission Date: 20240110
  Serious: Yes (Hospitalization)
  Sender: FDA-Public Use
  Company Number: FR-MYLANLABS-2023M1098497

PATIENT
  Age: 71 Year
  Sex: Male

DRUGS (8)
  1. CREON [Suspect]
     Active Substance: PANCRELIPASE AMYLASE\PANCRELIPASE LIPASE\PANCRELIPASE PROTEASE
     Indication: Pancreatic calcification
     Dosage: 3 DOSAGE FORM, QD (3 TABLETS A DAY) CREON 25 000 U, GELULE GASTRO-RESISTANTE LAST ADMIN DATE- 2023
     Route: 048
     Dates: start: 20230415
  2. CREON [Suspect]
     Active Substance: PANCRELIPASE AMYLASE\PANCRELIPASE LIPASE\PANCRELIPASE PROTEASE
     Indication: Pancreatic calcification
     Dosage: 6 DOSAGE FORM LAST ADMIN DATE 2023
     Route: 048
     Dates: start: 20230415
  3. CREON [Suspect]
     Active Substance: PANCRELIPASE AMYLASE\PANCRELIPASE LIPASE\PANCRELIPASE PROTEASE
     Indication: Pancreatic calcification
     Dosage: 3 DOSAGE FORM, QD (3 TABLETS A DAY) CREON 25 000 U, GELULE GASTRO-RESISTANTE
     Route: 048
     Dates: start: 202309, end: 202309
  4. CREON [Suspect]
     Active Substance: PANCRELIPASE AMYLASE\PANCRELIPASE LIPASE\PANCRELIPASE PROTEASE
     Indication: Pancreatic calcification
     Dosage: 6 DOSAGE FORM, QD (6 TABLETS A DAY) CREON 25 000 U, GELULE GASTRO-RESISTANTE
     Route: 048
     Dates: start: 202309
  5. CREON [Suspect]
     Active Substance: PANCRELIPASE AMYLASE\PANCRELIPASE LIPASE\PANCRELIPASE PROTEASE
     Indication: Pancreatic calcification
     Dosage: 6 DOSAGE FORM
     Route: 048
     Dates: start: 20231020, end: 20231024
  6. URSODIOL [Concomitant]
     Active Substance: URSODIOL
     Indication: Product used for unknown indication
     Dosage: UNK
  7. KARDEGIC [Concomitant]
     Active Substance: ASPIRIN DL-LYSINE
     Indication: Product used for unknown indication
     Dosage: UNK
  8. LANSOPRAZOLE [Concomitant]
     Active Substance: LANSOPRAZOLE
     Indication: Product used for unknown indication
     Dosage: UNK

REACTIONS (4)
  - Lipase increased [Unknown]
  - Flatulence [Recovered/Resolved]
  - Intentional product use issue [Unknown]
  - Constipation [Unknown]

NARRATIVE: CASE EVENT DATE: 20230824
